FAERS Safety Report 9313128 (Version 1)
Quarter: 2013Q2

REPORT INFORMATION
  Report Type: Report from Study
  Country: NL (occurrence: NL)
  Receive Date: 20130528
  Receipt Date: 20130528
  Transmission Date: 20140414
  Serious: Yes (Death)
  Sender: FDA-Public Use
  Company Number: PHHY2013NL053669

PATIENT
  Age: 74 Year
  Sex: Female

DRUGS (3)
  1. ACLASTA [Suspect]
     Indication: OSTEOPOROSIS
     Dosage: 5 MG/1X52 WEEKS
     Route: 042
     Dates: start: 20100629
  2. ACLASTA [Suspect]
     Dosage: 5 MG/1X52 WEEKS
     Route: 042
     Dates: start: 20110630
  3. ACLASTA [Suspect]
     Dosage: 5 MG/1X52 WEEKS
     Route: 042
     Dates: start: 20120626

REACTIONS (1)
  - Death [Fatal]
